FAERS Safety Report 5340068-1 (Version None)
Quarter: 2007Q2

REPORT INFORMATION
  Report Type: 
  Country: None (occurrence: None)
  Receive Date: 20070529
  Receipt Date: 20070524
  Transmission Date: 20071010
  Serious: Yes (Death)
  Sender: FDA-Public Use
  Company Number: LTI2007A00121

PATIENT
  Sex: Male

DRUGS (2)
  1. LEUPRORELIN DEPOT (3M) (LEUPROLIDE ACETATE) (INJECTION) [Suspect]
     Indication: PROSTATE CANCER
     Dosage: 11.25 MG (11.25 MG, 1 IN 3 M) SUBCUTANEOUS
     Route: 058
     Dates: start: 20061102
  2. FLUTAMIDE [Concomitant]

REACTIONS (1)
  - DEATH [None]
